FAERS Safety Report 9286554 (Version 3)
Quarter: 2013Q2

REPORT INFORMATION
  Report Type: Spontaneous
  Country: US (occurrence: US)
  Receive Date: 20130513
  Receipt Date: 20130604
  Transmission Date: 20140414
  Serious: Yes (Death, Hospitalization)
  Sender: FDA-Public Use
  Company Number: US-B.I. PHARMACEUTICALS,INC./RIDGEFIELD-2013-BI-12890BP

PATIENT
  Sex: Male

DRUGS (9)
  1. PRADAXA [Suspect]
     Indication: ATRIAL FIBRILLATION
     Dosage: 150 MG
  2. ALLOPURINOL [Concomitant]
  3. LIPITOR [Concomitant]
  4. COREG [Concomitant]
  5. DIOVAN [Concomitant]
  6. ALPRENOLOL [Concomitant]
  7. ZETIA [Concomitant]
  8. METOLAZONE [Concomitant]
  9. FUROSEMIDE [Concomitant]

REACTIONS (2)
  - Mesenteric artery embolism [Fatal]
  - Gastrointestinal necrosis [Fatal]
